FAERS Safety Report 17912855 (Version 1)
Quarter: 2020Q2

REPORT INFORMATION
  Report Type: Spontaneous
  Country: ES (occurrence: ES)
  Receive Date: 20200618
  Receipt Date: 20200618
  Transmission Date: 20200714
  Serious: Yes (Hospitalization, Other)
  Sender: FDA-Public Use
  Company Number: ES-MYLANLABS-2020M1054451

PATIENT
  Age: 87 Year
  Sex: Female

DRUGS (3)
  1. CEFTRIAXONE. [Concomitant]
     Active Substance: CEFTRIAXONE
     Indication: EVIDENCE BASED TREATMENT
  2. PREDNISONE. [Suspect]
     Active Substance: PREDNISONE
     Indication: RENAL TUBULAR DISORDER
     Dosage: 45 MG, QD
     Route: 065
  3. CEFTRIAXONE. [Concomitant]
     Active Substance: CEFTRIAXONE
     Indication: URINARY TRACT INFECTION
     Dosage: UNK
     Route: 065

REACTIONS (6)
  - Pneumonia [Unknown]
  - Product use in unapproved indication [Unknown]
  - Off label use [Unknown]
  - Aspergillus infection [Unknown]
  - Respiratory tract infection fungal [Unknown]
  - Bronchopulmonary aspergillosis [Unknown]

NARRATIVE: CASE EVENT DATE: 2018
